FAERS Safety Report 16393325 (Version 1)
Quarter: 2019Q3

REPORT INFORMATION
  Report Type: Spontaneous
  Country: US (occurrence: US)
  Receive Date: 20190603
  Receipt Date: 20190603
  Transmission Date: 20191004
  Serious: No
  Sender: FDA-Public Use
  Company Number: None

PATIENT
  Age: 84 Year
  Sex: Male
  Weight: 63 kg

DRUGS (1)
  1. NASACORT [Suspect]
     Active Substance: TRIAMCINOLONE ACETONIDE
     Indication: NASAL CONGESTION
     Dosage: ?          QUANTITY:2 INHALATION(S);OTHER ROUTE:IN NOSE?
     Dates: start: 20190501, end: 20190603

REACTIONS (1)
  - Product label confusion [None]

NARRATIVE: CASE EVENT DATE: 20190603
